FAERS Safety Report 11433841 (Version 2)
Quarter: 2015Q3

REPORT INFORMATION
  Report Type: Spontaneous
  Country: JP (occurrence: JP)
  Receive Date: 20150831
  Receipt Date: 20150902
  Transmission Date: 20151125
  Serious: Yes (Death, Hospitalization, Disabling, Other)
  Sender: FDA-Public Use
  Company Number: JP-ROCHE-1625315

PATIENT
  Age: 85 Year
  Sex: Male
  Weight: 38 kg

DRUGS (2)
  1. PREDNISOLONE. [Concomitant]
     Active Substance: PREDNISOLONE
     Route: 065
  2. ACTEMRA [Suspect]
     Active Substance: TOCILIZUMAB
     Indication: RHEUMATOID ARTHRITIS
     Dosage: DOSAGE IS UNCERTAIN.
     Route: 065
     Dates: start: 201010, end: 2012

REACTIONS (16)
  - Renal impairment [Unknown]
  - Pneumothorax [Unknown]
  - Pleurisy [Unknown]
  - Upper respiratory tract inflammation [Unknown]
  - Osteomyelitis [Recovering/Resolving]
  - Pseudomonas infection [Unknown]
  - Pneumonia aspiration [Fatal]
  - Pneumonia [Fatal]
  - Rheumatoid arthritis [Unknown]
  - Activities of daily living impaired [Unknown]
  - Infectious pleural effusion [Unknown]
  - Fall [Unknown]
  - Urinary tract infection [Unknown]
  - Abscess limb [Unknown]
  - Metabolic acidosis [Unknown]
  - Hypoalbuminaemia [Unknown]

NARRATIVE: CASE EVENT DATE: 2012
